FAERS Safety Report 5317349-0 (Version None)
Quarter: 2007Q2

REPORT INFORMATION
  Report Type: 
  Country: None (occurrence: None)
  Receive Date: 20070504
  Receipt Date: 20070423
  Transmission Date: 20071010
  Serious: Yes (Other)
  Sender: FDA-Public Use
  Company Number: DE-PFIZER INC-2007035196

PATIENT
  Sex: Female

DRUGS (1)
  1. ATARAX [Suspect]
     Dates: start: 20070423, end: 20070423

REACTIONS (2)
  - FATIGUE [None]
  - SUICIDE ATTEMPT [None]
